FAERS Safety Report 13456251 (Version 6)
Quarter: 2018Q2

REPORT INFORMATION
  Report Type: Report from Study
  Country: CA (occurrence: CA)
  Receive Date: 20170419
  Receipt Date: 20180611
  Transmission Date: 20180711
  Serious: Yes (Other)
  Sender: FDA-Public Use
  Company Number: CA-PFIZER INC-2017165730

PATIENT
  Age: 47 Year
  Sex: Male

DRUGS (11)
  1. PANTOLOC [Suspect]
     Active Substance: PANTOPRAZOLE SODIUM
     Indication: DYSPEPSIA
     Dosage: 20 MG, QD
     Route: 048
     Dates: start: 2013
  2. PLAVIX [Concomitant]
     Active Substance: CLOPIDOGREL BISULFATE
     Dosage: 1 DF, DAILY
     Dates: start: 2013
  3. METFORMIN [Concomitant]
     Active Substance: METFORMIN HYDROCHLORIDE
     Dosage: 500 MG, 2X/DAY
     Route: 048
  4. LIPITOR [Concomitant]
     Active Substance: ATORVASTATIN CALCIUM
     Dosage: 40 MG, DAILY
     Route: 048
     Dates: start: 2013
  5. METOPROLOL. [Concomitant]
     Active Substance: METOPROLOL
     Dosage: UNK, 2X/DAY
     Dates: start: 2013
  6. ENTYVIO [Suspect]
     Active Substance: VEDOLIZUMAB
     Indication: COLITIS ULCERATIVE
     Dosage: 300 MG, UNK
     Route: 042
     Dates: start: 20160705
  7. DIAMICRON [Concomitant]
     Active Substance: GLICLAZIDE
     Dosage: 30 MG, DAILY
     Route: 048
  8. IMURAN [Concomitant]
     Active Substance: AZATHIOPRINE
     Dosage: 50 MG, UNK
     Dates: start: 20031231
  9. ENTYVIO [Suspect]
     Active Substance: VEDOLIZUMAB
     Dosage: 300 MG, Q4WEEKS
     Route: 042
     Dates: start: 20180328
  10. SIMPONI [Concomitant]
     Active Substance: GOLIMUMAB
     Dosage: UNK
     Dates: start: 20160201
  11. TELMISARTAN. [Concomitant]
     Active Substance: TELMISARTAN
     Dosage: 20 MG, DAILY
     Dates: start: 201601

REACTIONS (3)
  - Condition aggravated [Unknown]
  - Colitis ulcerative [Unknown]
  - Faecal calprotectin increased [Not Recovered/Not Resolved]

NARRATIVE: CASE EVENT DATE: 201702
